FAERS Safety Report 18037117 (Version 4)
Quarter: 2020Q3

REPORT INFORMATION
  Report Type: Report from Study
  Country: FR (occurrence: FR)
  Receive Date: 20200717
  Receipt Date: 20200828
  Transmission Date: 20201103
  Serious: Yes (Death)
  Sender: FDA-Public Use
  Company Number: NVSC2020FR197415

PATIENT
  Age: 66 Year
  Sex: Male
  Weight: 71 kg

DRUGS (7)
  1. ELTROMBOPAG [Suspect]
     Active Substance: ELTROMBOPAG
     Indication: ACUTE MYELOID LEUKAEMIA
     Dosage: UNK
     Route: 048
     Dates: start: 20200214, end: 20200301
  2. CYTARABINE. [Suspect]
     Active Substance: CYTARABINE
     Indication: ACUTE MYELOID LEUKAEMIA
     Dosage: 2184 MG, QD INDUCTION D1 TO D7
     Route: 042
     Dates: start: 20200204, end: 20200210
  3. VALACICLOVIR [Concomitant]
     Active Substance: VALACYCLOVIR HYDROCHLORIDE
     Indication: PRODUCT USED FOR UNKNOWN INDICATION
     Dosage: UNK
     Route: 065
  4. COMPARATOR LOMUSTINE [Suspect]
     Active Substance: LOMUSTINE
     Indication: ACUTE MYELOID LEUKAEMIA
     Dosage: 400 MG QD ON D1 ONLY
     Route: 042
     Dates: start: 20200204, end: 20200204
  5. COMPARATOR DAUNORUBICIN [Suspect]
     Active Substance: DAUNORUBICIN
     Indication: ACUTE MYELOID LEUKAEMIA
     Dosage: 439.2 MG, QD INDUCTION D1 TO D3
     Route: 042
     Dates: start: 20200204, end: 20200206
  6. CYTARABINE. [Suspect]
     Active Substance: CYTARABINE
     Dosage: 2184 MG, QD MINI INDUCTION 1, D1 TO D5
     Route: 042
     Dates: start: 20200330, end: 20200403
  7. COMPARATOR DAUNORUBICIN [Suspect]
     Active Substance: DAUNORUBICIN
     Dosage: 439.2 MG, QD INDUCTION D1 TO D3
     Route: 042
     Dates: start: 20200330, end: 20200330

REACTIONS (2)
  - Bronchopulmonary aspergillosis [Fatal]
  - Myelosuppression [Fatal]

NARRATIVE: CASE EVENT DATE: 20200208
